FAERS Safety Report 7712340-9 (Version None)
Quarter: 2011Q3

REPORT INFORMATION
  Report Type: 
  Country: None (occurrence: None)
  Receive Date: 20110826
  Receipt Date: 20110818
  Transmission Date: 20111222
  Serious: Yes (Death, Other)
  Sender: FDA-Public Use
  Company Number: JP-PFIZER INC-2011182674

PATIENT
  Age: 73 Year

DRUGS (6)
  1. CYCLOPHOSPHAMIDE [Suspect]
     Indication: TRANSITIONAL CELL CARCINOMA
     Dosage: 500MG/M2 ON DAY 1
  2. BLEOMYCIN [Suspect]
     Indication: TRANSITIONAL CELL CARCINOMA
     Dosage: 30 MG ON DAY 1
  3. VINCRISTINE [Suspect]
     Indication: TRANSITIONAL CELL CARCINOMA
     Dosage: 0.6MG/M2 ON DAY 1
  4. METHOTREXATE SODIUM [Suspect]
     Indication: TRANSITIONAL CELL CARCINOMA
     Dosage: 20MG/M2 ON DAY 1
  5. CISPLATIN [Suspect]
     Indication: TRANSITIONAL CELL CARCINOMA
     Dosage: 50MG/M2 ON DAY 2
  6. ADRIAMYCIN PFS [Suspect]
     Indication: TRANSITIONAL CELL CARCINOMA
     Dosage: 20MG/M2 ON DAY 1

REACTIONS (1)
  - PULMONARY FIBROSIS [None]
